FAERS Safety Report 20375900 (Version 2)
Quarter: 2022Q3

REPORT INFORMATION
  Report Type: Report from Study
  Country: US (occurrence: US)
  Receive Date: 20220125
  Receipt Date: 20220905
  Transmission Date: 20221027
  Serious: Yes (Other)
  Sender: FDA-Public Use
  Company Number: US-NOVARTISPH-NVSC2022US013223

PATIENT
  Age: 75 Year
  Sex: Female

DRUGS (3)
  1. KISQALI FEMARA CO-PACK [Suspect]
     Active Substance: LETROZOLE\RIBOCICLIB
     Indication: Product used for unknown indication
     Dosage: 200 MG
     Route: 048
     Dates: start: 20191202, end: 2021
  2. KISQALI FEMARA CO-PACK [Suspect]
     Active Substance: LETROZOLE\RIBOCICLIB
     Indication: Product used for unknown indication
     Dosage: UNK
     Route: 065
  3. TYKERB [Suspect]
     Active Substance: LAPATINIB DITOSYLATE
     Indication: Product used for unknown indication
     Dosage: UNK
     Route: 065

REACTIONS (4)
  - Cardiac disorder [Not Recovered/Not Resolved]
  - Recurrent cancer [Unknown]
  - Herpes zoster [Unknown]
  - COVID-19 [Unknown]

NARRATIVE: CASE EVENT DATE: 20191202
